FAERS Safety Report 18223852 (Version 3)
Quarter: 2020Q4

REPORT INFORMATION
  Report Type: Spontaneous
  Country: JP (occurrence: JP)
  Receive Date: 20200902
  Receipt Date: 20201029
  Transmission Date: 20210113
  Serious: Yes (Death, Hospitalization, Other)
  Sender: FDA-Public Use
  Company Number: JP-ASTRAZENECA-2020SE79683

PATIENT
  Age: 33703 Day
  Sex: Male
  Weight: 51 kg

DRUGS (10)
  1. BREZTRI [Suspect]
     Active Substance: BUDESONIDE\FORMOTEROL\GLYCOPYRRONIUM
     Indication: EMPHYSEMA
     Dosage: 160/9/5 MCG,2 PUFFS TWICE DAILY
     Route: 055
     Dates: start: 20200603
  2. DIART [Concomitant]
     Active Substance: AZOSEMIDE
     Route: 048
  3. SODIUM RABEPRAZOLE [Concomitant]
     Active Substance: RABEPRAZOLE SODIUM
     Route: 048
  4. LASIX [Concomitant]
     Active Substance: FUROSEMIDE
     Dosage: DOSE AND FREQUENCY UNKNOWN
     Route: 048
  5. WARFARIN [Concomitant]
     Active Substance: WARFARIN
     Indication: ATRIAL FIBRILLATION
     Route: 048
  6. FEBURIC [Concomitant]
     Active Substance: FEBUXOSTAT
     Route: 048
  7. HALFDIGOXIN [Concomitant]
     Active Substance: DIGOXIN
     Dosage: DOSE AND FREQUENCY UNKNOWN
     Route: 048
  8. BERASUS LA [Concomitant]
     Active Substance: BERAPROST SODIUM
     Dosage: DOSE AND FREQUENCY UNKNOWN
     Route: 048
  9. SPIRONOLACTONE. [Concomitant]
     Active Substance: SPIRONOLACTONE
     Route: 048
  10. SAMSCA [Concomitant]
     Active Substance: TOLVAPTAN
     Route: 048

REACTIONS (4)
  - Cardiac failure [Fatal]
  - Chronic obstructive pulmonary disease [Fatal]
  - Pneumonia [Fatal]
  - Marasmus [Fatal]

NARRATIVE: CASE EVENT DATE: 20200613
